FAERS Safety Report 7268326-4 (Version None)
Quarter: 2011Q1

REPORT INFORMATION
  Report Type: 
  Country: None (occurrence: None)
  Receive Date: 20110121
  Receipt Date: 20110104
  Transmission Date: 20110831
  Serious: Yes (Hospitalization)
  Sender: FDA-Public Use
  Company Number: FR-004470

PATIENT
  Sex: Female

DRUGS (5)
  1. METFORMIN HCL [Concomitant]
  2. MINIRIN [Suspect]
     Indication: URINARY INCONTINENCE
     Dosage: (0.4 MG ORAL)
     Route: 048
     Dates: end: 20100901
  3. JANUVIA [Concomitant]
  4. COAPROVEL [Concomitant]
  5. TENORMIN [Concomitant]

REACTIONS (5)
  - APHASIA [None]
  - EPILEPSY [None]
  - HYPONATRAEMIA [None]
  - MALAISE [None]
  - CRYING [None]
